FAERS Safety Report 9379773 (Version 1)
Quarter: 2013Q2

REPORT INFORMATION
  Report Type: Spontaneous
  Country: TN (occurrence: None)
  Receive Date: 20130627
  Receipt Date: 20130627
  Transmission Date: 20140414
  Serious: Yes (Other)
  Sender: FDA-Public Use
  Company Number: 2013P1009681

PATIENT
  Age: 66 Year
  Sex: Female

DRUGS (3)
  1. DILTIAZEM [Suspect]
     Dates: start: 20120412
  2. METFORMIN [Concomitant]
  3. IRBESARTAN/HYDROCHLOROTHIAZIDE [Concomitant]

REACTIONS (1)
  - Acute generalised exanthematous pustulosis [None]
